FAERS Safety Report 4604536-X (Version None)
Quarter: 2005Q2

REPORT INFORMATION
  Report Type: 
  Country: None (occurrence: None)
  Receive Date: 20050217
  Receipt Date: 20041020
  Transmission Date: 20051028
  Serious: No
  Sender: FDA-Public Use
  Company Number: S04-USA-06997-01

PATIENT
  Age: 83 Year
  Sex: Female

DRUGS (12)
  1. NAMENDA [Suspect]
     Indication: DEMENTIA
     Dosage: 10 MG BID PO
     Route: 048
     Dates: start: 20040101
  2. NAMENDA [Suspect]
     Indication: DEMENTIA
     Dosage: 5 MG QD PO
     Route: 048
     Dates: start: 20040501, end: 20040101
  3. NAMENDA [Suspect]
     Indication: DEMENTIA
     Dosage: 5 MG BID PO
     Route: 048
     Dates: start: 20040101, end: 20040101
  4. NAMENDA [Suspect]
     Indication: DEMENTIA
     Dosage: 15 MG QD PO
     Route: 048
     Dates: start: 20040101, end: 20040101
  5. ZOLOFT [Concomitant]
  6. ZYPREXA [Concomitant]
  7. LISINOPRIL [Concomitant]
  8. ATENOLOL [Concomitant]
  9. BENICAR [Concomitant]
  10. ZANTAC [Concomitant]
  11. KLONOPIN [Concomitant]
  12. DEMADEX [Concomitant]

REACTIONS (6)
  - CONSTIPATION [None]
  - COUGH [None]
  - FATIGUE [None]
  - GAIT DISTURBANCE [None]
  - INSOMNIA [None]
  - NIGHT SWEATS [None]
